FAERS Safety Report 24956532 (Version 1)
Quarter: 2025Q1

REPORT INFORMATION
  Report Type: Spontaneous
  Country: US (occurrence: US)
  Receive Date: 20250211
  Receipt Date: 20250211
  Transmission Date: 20250409
  Serious: Yes (Other)
  Sender: IPSEN BIOPHARMACEUTICALS, INC.
  Company Number: US-IPSEN Group, Research and Development-2025-02781

PATIENT
  Age: 21 Year
  Sex: Male

DRUGS (4)
  1. TAZEMETOSTAT [Suspect]
     Active Substance: TAZEMETOSTAT
     Indication: Non-renal cell carcinoma of kidney
     Route: 065
  2. TAZEMETOSTAT [Suspect]
     Active Substance: TAZEMETOSTAT
     Indication: Off label use
  3. BORTEZOMIB [Suspect]
     Active Substance: BORTEZOMIB
     Indication: Non-renal cell carcinoma of kidney
     Route: 065
  4. PANITUMUMAB [Suspect]
     Active Substance: PANITUMUMAB
     Indication: Non-renal cell carcinoma of kidney
     Route: 065

REACTIONS (2)
  - Metastases to central nervous system [Unknown]
  - Off label use [Unknown]
